FAERS Safety Report 4677912-7 (Version None)
Quarter: 2005Q2

REPORT INFORMATION
  Report Type: 
  Country: None (occurrence: None)
  Receive Date: 20050527
  Receipt Date: 20050511
  Transmission Date: 20051028
  Serious: Yes (Disabling, Other)
  Sender: FDA-Public Use
  Company Number: GBWYE660312MAY05

PATIENT
  Age: 83 Year
  Sex: Female

DRUGS (5)
  1. CARDICOR (BISOPROLOL, TABLET, 0) [Suspect]
     Indication: HEART RATE IRREGULAR
     Dosage: 2.5 MG 1X PER 1 DAY
     Route: 048
     Dates: start: 20041101, end: 20041201
  2. DIGOXIN [Concomitant]
  3. BENDROFLUAZIDE (BENDROFLUMETHIAZIDE) [Concomitant]
  4. WARFARIN SODIUM [Concomitant]
  5. LOSARTAN POTASSIUM [Concomitant]

REACTIONS (4)
  - FEELING ABNORMAL [None]
  - MALAISE [None]
  - ORAL INTAKE REDUCED [None]
  - STOMACH DISCOMFORT [None]
